FAERS Safety Report 9642176 (Version 1)
Quarter: 2013Q4

REPORT INFORMATION
  Report Type: Spontaneous
  Country: US (occurrence: US)
  Receive Date: 20131023
  Receipt Date: 20131023
  Transmission Date: 20140711
  Serious: Yes (Hospitalization, Other)
  Sender: FDA-Public Use
  Company Number: US-JNJFOC-20131008033

PATIENT
  Sex: 0

DRUGS (5)
  1. OXYMETAZOLINE HYDROCHLORIDE [Suspect]
     Route: 065
  2. OXYMETAZOLINE HYDROCHLORIDE [Suspect]
     Indication: PRODUCT USED FOR UNKNOWN INDICATION
     Route: 065
  3. TETRAHYDROZOLINE [Suspect]
     Indication: PRODUCT USED FOR UNKNOWN INDICATION
     Route: 047
  4. TETRAHYDROZOLINE [Suspect]
     Indication: PRODUCT USED FOR UNKNOWN INDICATION
     Route: 047
  5. NAPHAZOLINE [Suspect]
     Indication: PRODUCT USED FOR UNKNOWN INDICATION
     Route: 065

REACTIONS (7)
  - Accidental exposure to product [Unknown]
  - Lethargy [Unknown]
  - Somnolence [Unknown]
  - Miosis [Unknown]
  - Bradycardia [Unknown]
  - Throat irritation [Unknown]
  - Vomiting [Unknown]
